FAERS Safety Report 23386929 (Version 1)
Quarter: 2024Q1

REPORT INFORMATION
  Report Type: Spontaneous
  Country: CN (occurrence: CN)
  Receive Date: 20240110
  Receipt Date: 20240110
  Transmission Date: 20240410
  Serious: Yes (Hospitalization)
  Sender: FDA-Public Use
  Company Number: CN-SANDOZ-SDZ2024CN002247

PATIENT
  Age: 80 Year
  Sex: Male
  Weight: 38 kg

DRUGS (1)
  1. VORICONAZOLE [Suspect]
     Active Substance: VORICONAZOLE
     Indication: Aspergillus infection
     Dosage: 0.20 G, BID
     Route: 048
     Dates: start: 20231214, end: 20231217

REACTIONS (3)
  - Disorganised speech [Recovering/Resolving]
  - Loss of personal independence in daily activities [Recovering/Resolving]
  - Hallucination [Recovering/Resolving]

NARRATIVE: CASE EVENT DATE: 20231217
